FAERS Safety Report 7833539-7 (Version None)
Quarter: 2011Q4

REPORT INFORMATION
  Report Type: 
  Country: None (occurrence: None)
  Receive Date: 20111024
  Receipt Date: 20111018
  Transmission Date: 20120403
  Serious: Yes (Hospitalization)
  Sender: FDA-Public Use
  Company Number: JP-EISAI INC-E2020-09859-SPO-JP

PATIENT
  Sex: Male

DRUGS (2)
  1. APRINDINE HYDROCHLORIDE [Concomitant]
     Route: 048
     Dates: start: 20000101, end: 20101019
  2. ARICEPT [Suspect]
     Indication: DEMENTIA
     Dosage: UNKNOWN
     Route: 048
     Dates: start: 20100901, end: 20101020

REACTIONS (1)
  - TORSADE DE POINTES [None]
